FAERS Safety Report 25190904 (Version 2)
Quarter: 2025Q2

REPORT INFORMATION
  Report Type: Spontaneous
  Country: DE (occurrence: DE)
  Receive Date: 20250411
  Receipt Date: 20250421
  Transmission Date: 20250717
  Serious: Yes (Life-Threatening)
  Sender: MYLAN
  Company Number: DE-MYLANLABS-2025M1028797

PATIENT
  Age: 31 Year
  Sex: Male
  Weight: 67 kg

DRUGS (4)
  1. TREVILOR RETARD [Suspect]
     Active Substance: VENLAFAXINE HYDROCHLORIDE
     Indication: Product used for unknown indication
  2. TREVILOR RETARD [Suspect]
     Active Substance: VENLAFAXINE HYDROCHLORIDE
     Route: 065
  3. TREVILOR RETARD [Suspect]
     Active Substance: VENLAFAXINE HYDROCHLORIDE
     Route: 065
  4. TREVILOR RETARD [Suspect]
     Active Substance: VENLAFAXINE HYDROCHLORIDE

REACTIONS (6)
  - Withdrawal syndrome [Unknown]
  - Lung disorder [Unknown]
  - Upper-airway cough syndrome [Unknown]
  - Mucosal disorder [Unknown]
  - Hormone level abnormal [Unknown]
  - Metabolic disorder [Unknown]
